FAERS Safety Report 9692654 (Version 6)
Quarter: 2014Q1

REPORT INFORMATION
  Report Type: Spontaneous
  Country: GB (occurrence: GB)
  Receive Date: 20131118
  Receipt Date: 20140318
  Transmission Date: 20141002
  Serious: Yes (Other)
  Sender: FDA-Public Use
  Company Number: PHFR2011GB01505

PATIENT
  Age: 34 Year
  Sex: Male

DRUGS (4)
  1. CLOZARIL [Suspect]
     Indication: SCHIZOAFFECTIVE DISORDER
     Dosage: 600 MG DAILY
     Route: 048
     Dates: start: 20110218
  2. CLOZARIL [Suspect]
     Indication: SCHIZOPHRENIA
  3. VALPROATE SODIUM [Concomitant]
     Indication: SCHIZOAFFECTIVE DISORDER
     Dosage: 600 MG, DAILY
     Route: 048
     Dates: start: 2011
  4. HYOSCINE [Concomitant]
     Indication: SCHIZOPHRENIA
     Dosage: 300 UG DAILY
     Route: 048
     Dates: start: 2011

REACTIONS (3)
  - Tuberculosis [Recovering/Resolving]
  - White blood cell count increased [Recovered/Resolved]
  - Differential white blood cell count abnormal [Recovered/Resolved]
